FAERS Safety Report 4697997-1 (Version None)
Quarter: 2005Q2

REPORT INFORMATION
  Report Type: 
  Country: None (occurrence: None)
  Receive Date: 20050119
  Receipt Date: 20050119
  Transmission Date: 20051028
  Serious: No
  Sender: FDA-Public Use
  Company Number: None

PATIENT
  Sex: Female
  Weight: 81.1939 kg

DRUGS (1)
  1. ZIAC [Suspect]
     Indication: HYPERTENSION
     Dosage: SEE NOTES

REACTIONS (3)
  - DRUG INTOLERANCE [None]
  - HEADACHE [None]
  - MALAISE [None]
